FAERS Safety Report 19698610 (Version 3)
Quarter: 2024Q3

REPORT INFORMATION
  Report Type: Spontaneous
  Country: DE (occurrence: DE)
  Receive Date: 20210813
  Receipt Date: 20240910
  Transmission Date: 20241016
  Serious: No
  Sender: ALKEM
  Company Number: None

PATIENT
  Sex: Male

DRUGS (25)
  1. PREGABALIN [Suspect]
     Active Substance: PREGABALIN
     Indication: Pain
     Dosage: UNK
     Route: 065
     Dates: start: 20201030
  2. PREGABALIN [Suspect]
     Active Substance: PREGABALIN
     Indication: Herpes zoster
     Dosage: UNK
     Route: 065
     Dates: start: 20201104
  3. PREGABALIN [Suspect]
     Active Substance: PREGABALIN
     Dosage: 600 MILLIGRAM, QD  (EVERY 1 DAY)
     Route: 065
     Dates: start: 20201127
  4. PREGABALIN [Suspect]
     Active Substance: PREGABALIN
     Dosage: 500 MILLIGRAM, QD (EVERY 1 DAY)
     Route: 065
     Dates: start: 20201216
  5. PREGABALIN [Suspect]
     Active Substance: PREGABALIN
     Dosage: 200 MILLIGRAM, QD (EVERY 1 DAY)
     Route: 065
     Dates: start: 20210111
  6. PREGABALIN [Suspect]
     Active Substance: PREGABALIN
     Dosage: 200 MILLIGRAM, QD  (EVERY 1 DAY)
     Route: 065
     Dates: start: 20210122
  7. PREGABALIN [Suspect]
     Active Substance: PREGABALIN
     Dosage: 150 MILLIGRAM, QD  (EVERY 1 DAY)
     Route: 065
     Dates: start: 20210401
  8. PREGABALIN [Suspect]
     Active Substance: PREGABALIN
     Dosage: 175 MILLIGRAM, EVERY 1 DAY
     Route: 065
     Dates: start: 20210409
  9. AMITRIPTYLINE [Suspect]
     Active Substance: AMITRIPTYLINE
     Indication: Herpes zoster
     Dosage: 25 MILLIGRAM
     Route: 048
     Dates: start: 20201109
  10. AMITRIPTYLINE [Suspect]
     Active Substance: AMITRIPTYLINE
     Indication: Pain
     Dosage: 1 DOSAGE FORM, QD
     Route: 065
     Dates: start: 20201127
  11. AMITRIPTYLINE [Suspect]
     Active Substance: AMITRIPTYLINE
     Dosage: 10 MILLIGRAM, QD
     Route: 065
     Dates: start: 20201216
  12. Anaesthesulf [Concomitant]
     Indication: Herpes zoster
     Dosage: UNK
     Route: 065
     Dates: start: 20201030
  13. BRIVUDINE [Concomitant]
     Active Substance: BRIVUDINE
     Indication: Herpes zoster
     Dosage: UNK
     Route: 065
     Dates: start: 20201013
  14. EBENOL [Concomitant]
     Indication: Herpes zoster
     Dosage: UNK
     Route: 065
     Dates: start: 20201013
  15. FLUMETHASONE PIVALATE [Concomitant]
     Active Substance: FLUMETHASONE PIVALATE
     Indication: Herpes zoster
     Dosage: UNK
     Route: 065
     Dates: start: 20201016
  16. Medivitan Spritzen [Concomitant]
     Indication: Herpes zoster
     Dosage: UNK
     Route: 065
     Dates: start: 20201118
  17. METAMIZOLE [Concomitant]
     Active Substance: METAMIZOLE
     Indication: Product used for unknown indication
     Dosage: UNK
     Route: 065
     Dates: start: 20201016
  18. Octenilin [Concomitant]
     Indication: Herpes zoster
     Dosage: UNK
     Route: 065
     Dates: start: 20201022
  19. Vitamin B - Infusion [Concomitant]
     Indication: Product used for unknown indication
     Dosage: UNK (1 TOTAL)
     Route: 065
     Dates: start: 20201120, end: 20210205
  20. Vitamin B - Infusion [Concomitant]
     Dosage: UNK ( 1 TOTAL)
     Route: 065
     Dates: start: 20201127, end: 20201127
  21. Vitamin B - Infusion [Concomitant]
     Dosage: UNK ( 1 TOTAL)
     Route: 065
     Dates: start: 20201204, end: 20201204
  22. Vitamin B - Infusion [Concomitant]
     Dosage: UNK ( 1 TOTAL)
     Route: 065
     Dates: start: 20201211, end: 20201211
  23. Vitamin B - Infusion [Concomitant]
     Dosage: UNK ( 1 TOTAL)
     Route: 065
     Dates: start: 20201216, end: 20201216
  24. Vitamin B - Infusion [Concomitant]
     Dosage: UNK ( 1 TOTAL) (SOLUTION FOR INFUSION)
     Route: 065
     Dates: start: 20201223, end: 20201223
  25. Vitamin B - Infusion [Concomitant]
     Dosage: UNK ( 1 TOTAL)
     Route: 065
     Dates: start: 20210111, end: 20210111

REACTIONS (17)
  - Urge incontinence [Unknown]
  - Thirst [Unknown]
  - Pain of skin [Recovered/Resolved]
  - Back pain [Unknown]
  - Disorientation [Unknown]
  - Pain [Recovering/Resolving]
  - Dry mouth [Unknown]
  - Memory impairment [Unknown]
  - Paraesthesia [Unknown]
  - Visual impairment [Unknown]
  - Fatigue [Unknown]
  - Breast enlargement [Unknown]
  - Constipation [Unknown]
  - Muscle spasms [Unknown]
  - Ageusia [Unknown]
  - Alopecia [Unknown]
  - Weight increased [Unknown]

NARRATIVE: CASE EVENT DATE: 20201109
